FAERS Safety Report 11761435 (Version 2)
Quarter: 2018Q3

REPORT INFORMATION
  Report Type: Spontaneous
  Country: US (occurrence: US)
  Receive Date: 20151120
  Receipt Date: 20180705
  Transmission Date: 20181010
  Serious: Yes (Other)
  Sender: FDA-Public Use
  Company Number: US-DSJP-DSU-2015-121630

PATIENT

DRUGS (2)
  1. BENICAR [Suspect]
     Active Substance: OLMESARTAN MEDOXOMIL
     Dosage: 40 MG, QD
     Dates: start: 20120804, end: 20150206
  2. BENICAR [Suspect]
     Active Substance: OLMESARTAN MEDOXOMIL
     Indication: HYPERTENSION
     Dosage: 20 MG, QD
     Dates: start: 20120804, end: 20150206

REACTIONS (12)
  - Colitis [Unknown]
  - Lymphadenopathy [Unknown]
  - Sprue-like enteropathy [Unknown]
  - Melaena [Unknown]
  - Anxiety [Unknown]
  - Pancreatic cyst [Unknown]
  - Haematuria [Unknown]
  - Biliary dilatation [Unknown]
  - Rectal haemorrhage [Unknown]
  - Coeliac disease [Unknown]
  - Diverticulitis [Unknown]
  - Adenoma benign [Unknown]

NARRATIVE: CASE EVENT DATE: 201311
